FAERS Safety Report 7604051-5 (Version None)
Quarter: 2011Q3

REPORT INFORMATION
  Report Type: 
  Country: None (occurrence: None)
  Receive Date: 20110712
  Receipt Date: 20110627
  Transmission Date: 20111222
  Serious: Yes (Other)
  Sender: FDA-Public Use
  Company Number: JP-WATSON-2011-09994

PATIENT

DRUGS (2)
  1. HYDROCORTISONE ACETATE [Suspect]
     Indication: MATERNAL EXPOSURE DURING PREGNANCY
     Dosage: UNK
     Route: 064
  2. NSAID'S [Suspect]
     Indication: MATERNAL EXPOSURE DURING PREGNANCY
     Route: 064

REACTIONS (2)
  - SUPRAVENTRICULAR TACHYCARDIA [None]
  - DUCTUS ARTERIOSUS PREMATURE CLOSURE [None]
